FAERS Safety Report 8932966 (Version 1)
Quarter: 2012Q4

REPORT INFORMATION
  Report Type: Spontaneous
  Country: US (occurrence: None)
  Receive Date: 20121127
  Receipt Date: 20121127
  Transmission Date: 20130627
  Serious: Yes (Hospitalization)
  Sender: FDA-Public Use
  Company Number: None

PATIENT
  Age: 53 Year
  Sex: Female
  Weight: 79.83 kg

DRUGS (3)
  1. PEGASYS [Suspect]
     Indication: HEPATITIS C
     Route: 058
     Dates: start: 20120711, end: 20121116
  2. RIBASPHERE [Suspect]
     Dates: start: 20120711, end: 20121116
  3. PROCRIT [Suspect]
     Dates: start: 20120803, end: 20121116

REACTIONS (1)
  - Ascites [None]
